FAERS Safety Report 6370054-4 (Version None)
Quarter: 2009Q3

REPORT INFORMATION
  Report Type: 
  Country: None (occurrence: None)
  Receive Date: 20090923
  Receipt Date: 20070417
  Transmission Date: 20100115
  Serious: Yes (Other)
  Sender: FDA-Public Use
  Company Number: US-ASTRAZENECA-2006UW20970

PATIENT
  Age: 19791 Day
  Sex: Male
  Weight: 94.8 kg

DRUGS (33)
  1. SEROQUEL [Suspect]
     Indication: DEPRESSION
     Dosage: 25-300 MG
     Route: 048
     Dates: start: 19980101
  2. SEROQUEL [Suspect]
     Indication: ANXIETY
     Dosage: 25-300 MG
     Route: 048
     Dates: start: 19980101
  3. SEROQUEL [Suspect]
     Route: 048
     Dates: start: 20000731
  4. SEROQUEL [Suspect]
     Route: 048
     Dates: start: 20000731
  5. PRAVACHOL [Concomitant]
     Route: 065
  6. PEPCID [Concomitant]
     Route: 048
  7. CARDURA [Concomitant]
     Dosage: 1-4 MG AT NIGHT
     Route: 048
  8. NORVASC [Concomitant]
     Dosage: 2.5-7.5 MG EVERYDAY
     Route: 048
  9. SERZONE [Concomitant]
     Route: 048
  10. ZOLOFT [Concomitant]
     Route: 048
  11. TOPROL-XL [Concomitant]
     Dosage: 50-100 MG DAILY
     Route: 048
  12. ZOCOR [Concomitant]
     Dosage: 10-20 MG DAILY
     Route: 048
  13. ALLOPURINOL [Concomitant]
     Route: 048
  14. COLCHICINE [Concomitant]
     Route: 048
  15. LORATADINE [Concomitant]
     Route: 048
  16. ASPIRIN [Concomitant]
     Route: 065
  17. METFORMIN HCL [Concomitant]
     Route: 048
  18. CITALOPRAM HYDROBROMIDE [Concomitant]
     Route: 048
  19. DIOVAN [Concomitant]
     Dosage: 150-160 MG
     Route: 048
  20. ACETAMINOPHEN [Concomitant]
     Route: 065
  21. ZETIA [Concomitant]
     Route: 048
  22. FUROSEMIDE [Concomitant]
     Dosage: 20-40 MG
     Route: 048
  23. ISOSORBIDE MONONITRATE [Concomitant]
     Route: 065
  24. TESTOSTERONE [Concomitant]
     Indication: ERECTILE DYSFUNCTION
     Route: 030
  25. RISPERDAL [Concomitant]
     Dosage: 1-2 MG TWO TIMES A DAY
     Route: 048
  26. PRILOSEC [Concomitant]
     Indication: PEPTIC ULCER
     Route: 048
  27. REMERON [Concomitant]
     Dosage: 15-40 MG AT NIGHT
     Route: 048
  28. ATIVAN [Concomitant]
     Dosage: 1-2 MG DAILY
     Route: 048
  29. CRESTOR [Concomitant]
     Route: 048
  30. PLAVIX [Concomitant]
     Route: 048
  31. NEXIUM [Concomitant]
     Route: 048
  32. FERROUS SULFATE TAB [Concomitant]
     Route: 048
  33. LIPITOR [Concomitant]
     Route: 048

REACTIONS (20)
  - ANGINA PECTORIS [None]
  - BALANCE DISORDER [None]
  - DIABETES MELLITUS [None]
  - DYSPEPSIA [None]
  - DYSPHORIA [None]
  - ERECTILE DYSFUNCTION [None]
  - ESSENTIAL HYPERTENSION [None]
  - HALLUCINATION, AUDITORY [None]
  - HEADACHE [None]
  - HEPATIC STEATOSIS [None]
  - HEPATITIS [None]
  - HYPERCHOLESTEROLAEMIA [None]
  - HYPERTENSION [None]
  - MUSCULOSKELETAL PAIN [None]
  - PAIN IN EXTREMITY [None]
  - PHARYNGITIS BACTERIAL [None]
  - RADICULOPATHY [None]
  - SINUSITIS [None]
  - TENSION HEADACHE [None]
  - UPPER RESPIRATORY TRACT INFECTION [None]
